FAERS Safety Report 6095761-2 (Version None)
Quarter: 2009Q1

REPORT INFORMATION
  Report Type: 
  Country: None (occurrence: None)
  Receive Date: 20090227
  Receipt Date: 20080602
  Transmission Date: 20090719
  Serious: No
  Sender: FDA-Public Use
  Company Number: A0732299A

PATIENT
  Sex: Female

DRUGS (2)
  1. LAMICTAL [Suspect]
     Indication: DRUG USE FOR UNKNOWN INDICATION
  2. BIRTH CONTROL PILLS [Suspect]

REACTIONS (5)
  - AURA [None]
  - BREAST PAIN [None]
  - DRUG EFFECT DECREASED [None]
  - DRUG INTERACTION [None]
  - METRORRHAGIA [None]
